FAERS Safety Report 12919921 (Version 1)
Quarter: 2016Q4

REPORT INFORMATION
  Report Type: Spontaneous
  Country: AU (occurrence: AU)
  Receive Date: 20161107
  Receipt Date: 20161107
  Transmission Date: 20170207
  Serious: Yes (Other)
  Sender: FDA-Public Use
  Company Number: AU-009507513-1606AUS002968

PATIENT
  Age: 41 Year
  Sex: Female

DRUGS (4)
  1. DIAZEPAM. [Concomitant]
     Active Substance: DIAZEPAM
     Dosage: 5 MG, QPM
  2. IMPLANON [Suspect]
     Active Substance: ETONOGESTREL
     Dosage: 1 DF, UNK
     Route: 059
     Dates: start: 20160602, end: 20160605
  3. IMPLANON [Suspect]
     Active Substance: ETONOGESTREL
     Dosage: UNK
  4. AGOMELATINE [Concomitant]
     Active Substance: AGOMELATINE
     Dosage: 25 MG, QPM

REACTIONS (4)
  - Implant site infection [Unknown]
  - Nausea [Unknown]
  - Device difficult to use [Unknown]
  - Diarrhoea [Unknown]

NARRATIVE: CASE EVENT DATE: 20160603
